FAERS Safety Report 21278426 (Version 2)
Quarter: 2022Q3

REPORT INFORMATION
  Report Type: Spontaneous
  Country: JP (occurrence: JP)
  Receive Date: 20220831
  Receipt Date: 20220906
  Transmission Date: 20221026
  Serious: Yes (Other)
  Sender: FDA-Public Use
  Company Number: JP-BRISTOL-MYERS SQUIBB COMPANY-2022-097934

PATIENT
  Age: 8 Decade
  Sex: Male

DRUGS (6)
  1. IPILIMUMAB [Suspect]
     Active Substance: IPILIMUMAB
     Indication: Non-small cell lung cancer
     Route: 065
     Dates: start: 20220809, end: 20220809
  2. IPILIMUMAB [Suspect]
     Active Substance: IPILIMUMAB
     Route: 065
     Dates: start: 20220830, end: 20220830
  3. OPDIVO [Suspect]
     Active Substance: NIVOLUMAB
     Indication: Non-small cell lung cancer
     Route: 065
     Dates: start: 20220809, end: 20220809
  4. OPDIVO [Suspect]
     Active Substance: NIVOLUMAB
     Route: 065
     Dates: start: 20220830, end: 20220830
  5. CARBOPLATIN [Concomitant]
     Active Substance: CARBOPLATIN
     Indication: Non-small cell lung cancer
     Route: 065
     Dates: start: 20220808
  6. PACLITAXEL [Concomitant]
     Active Substance: PACLITAXEL
     Indication: Non-small cell lung cancer
     Route: 065
     Dates: start: 20220808

REACTIONS (2)
  - Blood pressure decreased [Recovered/Resolved]
  - Altered state of consciousness [Unknown]

NARRATIVE: CASE EVENT DATE: 20220809
